FAERS Safety Report 15655920 (Version 2)
Quarter: 2018Q4

REPORT INFORMATION
  Report Type: Spontaneous
  Country: JP (occurrence: JP)
  Receive Date: 20181126
  Receipt Date: 20181219
  Transmission Date: 20190205
  Serious: Yes (Hospitalization)
  Sender: FDA-Public Use
  Company Number: JP-HORIZON-BUP-0073-2018

PATIENT
  Age: 1 Month
  Sex: Male
  Weight: 1.15 kg

DRUGS (1)
  1. BUPHENYL [Suspect]
     Active Substance: SODIUM PHENYLBUTYRATE
     Indication: FOETAL EXPOSURE DURING PREGNANCY
     Route: 064
     Dates: start: 20180903, end: 2018

REACTIONS (8)
  - Rickets [Not Recovered/Not Resolved]
  - Premature baby [Recovered/Resolved]
  - Apnoea [Recovered/Resolved]
  - Hypoglycaemia [Recovered/Resolved]
  - Small for dates baby [Recovered/Resolved]
  - Low birth weight baby [Recovered/Resolved]
  - Anaemia [Not Recovered/Not Resolved]
  - Foetal exposure during pregnancy [Unknown]

NARRATIVE: CASE EVENT DATE: 20181010
